FAERS Safety Report 8494227-X (Version None)
Quarter: 2012Q2

REPORT INFORMATION
  Report Type: 
  Country: None (occurrence: None)
  Receive Date: 20120628
  Receipt Date: 20120619
  Transmission Date: 20120825
  Serious: Yes (Other)
  Sender: FDA-Public Use
  Company Number: AUR-APL-2012-02202

PATIENT
  Age: 43 Year
  Sex: Male

DRUGS (6)
  1. LAMOTRIGINE [Suspect]
     Indication: PRODUCT USED FOR UNKNOWN INDICATION
     Dosage: 200 MG (200 MG,1 IN 1 D)
  2. CLOZAPINE [Suspect]
     Indication: PRODUCT USED FOR UNKNOWN INDICATION
     Dosage: (650 MG,1 D),ORAL ; ORAL
     Route: 048
     Dates: start: 20120502
  3. CLOZAPINE [Suspect]
     Indication: PRODUCT USED FOR UNKNOWN INDICATION
     Dosage: (650 MG,1 D),ORAL ; ORAL
     Route: 048
     Dates: start: 20050701, end: 20120425
  4. ACETAMINOPHEN W/ CODEINE [Suspect]
     Indication: BACK PAIN
  5. SULPRID (SULPIRIDE) [Concomitant]
  6. IBUPROFEN [Suspect]
     Indication: BACK PAIN

REACTIONS (4)
  - WHITE BLOOD CELL COUNT DECREASED [None]
  - NEUTROPENIA [None]
  - DRUG INTERACTION [None]
  - BACK PAIN [None]
